FAERS Safety Report 7388009-X (Version None)
Quarter: 2011Q2

REPORT INFORMATION
  Report Type: 
  Country: None (occurrence: None)
  Receive Date: 20110401
  Receipt Date: 20110329
  Transmission Date: 20111010
  Serious: Yes (Hospitalization, Disabling, Other)
  Sender: FDA-Public Use
  Company Number: BR-ELI_LILLY_AND_COMPANY-BR201103005541

PATIENT
  Age: 68 Year
  Sex: Male
  Weight: 83 kg

DRUGS (8)
  1. ATENOLOL [Concomitant]
     Indication: HYPERTENSION
     Dosage: UNK, QD
     Route: 065
  2. BENICAR [Concomitant]
     Indication: HYPERTENSION
     Dosage: UNK, QD
     Route: 065
  3. ENALAPRIL MALEATO [Concomitant]
     Indication: HYPERTENSION
     Dosage: UNK, QD
     Route: 065
  4. SINVASTATINA [Concomitant]
     Dosage: UNK, QD
     Route: 065
  5. HIDROCLOROTIAZIDA [Concomitant]
     Indication: FLUID IMBALANCE
     Dosage: UNK, QD
     Route: 065
  6. AAS [Concomitant]
     Indication: BLOOD DISORDER
     Dosage: UNK, QD
     Route: 065
  7. HUMULIN N [Suspect]
     Indication: TYPE 1 DIABETES MELLITUS
     Dosage: 58 IU, QD
     Dates: start: 19940101
  8. APIDRA [Concomitant]
     Indication: DIABETES MELLITUS
     Dosage: UNK, QD
     Route: 065

REACTIONS (4)
  - PROTEINURIA [None]
  - VISUAL IMPAIRMENT [None]
  - HYPERTENSION [None]
  - DIABETIC RETINOPATHY [None]
